FAERS Safety Report 23961528 (Version 1)
Quarter: 2024Q2

REPORT INFORMATION
  Report Type: Spontaneous
  Country: AU (occurrence: AU)
  Receive Date: 20240611
  Receipt Date: 20240611
  Transmission Date: 20240716
  Serious: Yes (Hospitalization, Disabling, Congenital Anomaly, Other)
  Sender: FDA-Public Use
  Company Number: AU-SANOFI-AVENTIS-2013SA061932

PATIENT
  Sex: Male

DRUGS (20)
  1. AMOXICILLIN [Suspect]
     Active Substance: AMOXICILLIN
     Indication: Maternal exposure during pregnancy
     Dosage: UNK
     Route: 064
  2. AMOXICILLIN [Suspect]
     Active Substance: AMOXICILLIN
     Indication: Urinary tract infection
     Dosage: UNK
     Route: 065
  3. AMPICILLIN SODIUM [Suspect]
     Active Substance: AMPICILLIN SODIUM
     Indication: Maternal exposure during pregnancy
     Dosage: UNK
     Route: 064
  4. AMPICILLIN SODIUM [Suspect]
     Active Substance: AMPICILLIN SODIUM
     Indication: Urinary tract infection
     Dosage: UNK
     Route: 065
  5. CEPHALEXIN [Suspect]
     Active Substance: CEPHALEXIN
     Indication: Maternal exposure during pregnancy
     Dosage: UNK
     Route: 064
  6. CEPHALEXIN [Suspect]
     Active Substance: CEPHALEXIN
     Indication: Urinary tract infection
     Dosage: UNK
     Route: 065
  7. CEFTRIAXONE [Suspect]
     Active Substance: CEFTRIAXONE\CEFTRIAXONE SODIUM
     Indication: Maternal exposure during pregnancy
     Dosage: UNK
     Route: 064
  8. CEFTRIAXONE [Suspect]
     Active Substance: CEFTRIAXONE\CEFTRIAXONE SODIUM
     Indication: Urinary tract infection
     Dosage: UNK
     Route: 065
  9. ENOXAPARIN SODIUM [Suspect]
     Active Substance: ENOXAPARIN SODIUM
     Indication: Maternal exposure during pregnancy
     Dosage: 40 MG, Q12H
     Route: 064
     Dates: start: 2005
  10. ENOXAPARIN SODIUM [Suspect]
     Active Substance: ENOXAPARIN SODIUM
     Indication: Thrombosis prophylaxis
     Dosage: UNK
     Route: 065
  11. FLUCONAZOLE [Suspect]
     Active Substance: FLUCONAZOLE
     Indication: Maternal exposure during pregnancy
     Dosage: UNK
     Route: 064
  12. FLUCONAZOLE [Suspect]
     Active Substance: FLUCONAZOLE
     Indication: Vulvovaginal candidiasis
     Dosage: UNK
     Route: 065
  13. GENTAMICIN SULFATE [Suspect]
     Active Substance: GENTAMICIN SULFATE
     Indication: Maternal exposure during pregnancy
     Dosage: UNK
     Route: 064
  14. GENTAMICIN SULFATE [Suspect]
     Active Substance: GENTAMICIN SULFATE
     Indication: Urinary tract infection
     Dosage: UNK
     Route: 065
  15. HEPARIN SODIUM [Suspect]
     Active Substance: HEPARIN SODIUM
     Indication: Maternal exposure during pregnancy
     Dosage: 5000 IU, Q8H
     Route: 064
  16. MEROPENEM [Suspect]
     Active Substance: MEROPENEM
     Indication: Maternal exposure during pregnancy
     Dosage: UNK
     Route: 064
  17. MEROPENEM [Suspect]
     Active Substance: MEROPENEM
     Indication: Urinary tract infection
     Dosage: UNK
     Route: 065
  18. ACETAMINOPHEN [Suspect]
     Active Substance: ACETAMINOPHEN
     Indication: Maternal exposure during pregnancy
     Dosage: UNK
     Route: 064
  19. RANITIDINE [Suspect]
     Active Substance: RANITIDINE
     Indication: Maternal exposure during pregnancy
     Dosage: UNK
     Route: 064
  20. RANITIDINE [Suspect]
     Active Substance: RANITIDINE
     Indication: Haemorrhage prophylaxis
     Dosage: UNK
     Route: 065

REACTIONS (10)
  - Congenital multiplex arthrogryposis [Unknown]
  - Talipes [Unknown]
  - Conductive deafness [Unknown]
  - Cerebral palsy [Unknown]
  - Diplegia [Unknown]
  - Otitis media [Unknown]
  - Joint contracture [Unknown]
  - Joint dislocation [Unknown]
  - Foetal exposure during pregnancy [Unknown]
  - Hypotonia [Unknown]
